FAERS Safety Report 8952907 (Version 1)
Quarter: 2012Q4

REPORT INFORMATION
  Report Type: 
  Country: US (occurrence: US)
  Receive Date: 20121203
  Receipt Date: 20121203
  Transmission Date: 20130627
  Serious: Yes (Hospitalization, Other)
  Sender: FDA-Public Use
  Company Number: CHPA2012US023988

PATIENT
  Age: 86 Year
  Sex: Female

DRUGS (2)
  1. MYOFLEX ANALGESIC CREME [Suspect]
     Indication: ARTHRITIS
     Dosage: Unk, as needed
     Route: 061
     Dates: start: 2002, end: 2012
  2. BEN-GAY [Suspect]
     Indication: ARTHRITIS
     Dosage: Unk, Unk
     Route: 061
     Dates: start: 20121116, end: 20121116

REACTIONS (10)
  - Upper limb fracture [Recovered/Resolved]
  - Mobility decreased [Not Recovered/Not Resolved]
  - Fall [Recovered/Resolved]
  - Ligament sprain [Recovered/Resolved]
  - Arthralgia [Not Recovered/Not Resolved]
  - Rhinorrhoea [Unknown]
  - Cardiac operation [None]
  - Ligament sprain [None]
  - Ligament sprain [None]
  - Ligament sprain [None]
